FAERS Safety Report 13814369 (Version 3)
Quarter: 2017Q3

REPORT INFORMATION
  Report Type: Spontaneous
  Country: US (occurrence: US)
  Receive Date: 20170731
  Receipt Date: 20170818
  Transmission Date: 20171127
  Serious: No
  Sender: FDA-Public Use
  Company Number: US-B.I. PHARMACEUTICALS,INC./RIDGEFIELD-2017-BI-042293

PATIENT
  Age: 70 Year
  Sex: Male

DRUGS (3)
  1. SPIRIVA [Suspect]
     Active Substance: TIOTROPIUM BROMIDE MONOHYDRATE
     Indication: CHRONIC OBSTRUCTIVE PULMONARY DISEASE
     Dosage: DAILY;  FORM STRENGTH: 18 MCG; FORMULATION: CAPSULE? ADMINISTRATION CORRECT? YES ?ACTION(S) TAKEN WI
     Route: 055
     Dates: start: 20170717
  2. SYMVOSTATIN [Concomitant]
     Indication: BLOOD CHOLESTEROL INCREASED
     Dosage: DAILY;  FORMULATION: TABLET;
     Route: 065
  3. DOXAZOSIN [Concomitant]
     Active Substance: DOXAZOSIN\DOXAZOSIN MESYLATE
     Indication: PROSTATIC DISORDER
     Dosage: DAILY;
     Route: 065

REACTIONS (4)
  - Fatigue [Recovered/Resolved]
  - Pollakiuria [Not Recovered/Not Resolved]
  - Drug ineffective [Recovered/Resolved]
  - Product physical issue [Recovered/Resolved]

NARRATIVE: CASE EVENT DATE: 201707
